FAERS Safety Report 12365969 (Version 1)
Quarter: 2016Q2

REPORT INFORMATION
  Report Type: Spontaneous
  Country: US (occurrence: US)
  Receive Date: 20160513
  Receipt Date: 20160513
  Transmission Date: 20160815
  Serious: Yes (Hospitalization)
  Sender: FDA-Public Use
  Company Number: US-VIRTUS PHARMACEUTICALS, LLC-2016VTS00016

PATIENT
  Age: 85 Year
  Sex: Female
  Weight: 54.42 kg

DRUGS (4)
  1. POTASSIUM CHLORIDE. [Suspect]
     Active Substance: POTASSIUM CHLORIDE
     Indication: ELECTROLYTE SUBSTITUTION THERAPY
     Dosage: 20 MEQ, 1X/DAY
     Route: 048
     Dates: start: 201603, end: 2016
  2. POTASSIUM CHLORIDE. [Suspect]
     Active Substance: POTASSIUM CHLORIDE
     Dosage: 1.5 DOSAGE UNITS, ONCE
     Route: 048
     Dates: start: 20160420, end: 20160420
  3. UNSPECIFIED MEDICATIONS BECAUSE ^HEART BEATS TOO HIGH^ [Concomitant]
  4. FUROSEMIDE. [Concomitant]
     Active Substance: FUROSEMIDE
     Indication: SWELLING
     Dosage: 40 MG, UP TO 3X/DAY
     Dates: start: 2013

REACTIONS (14)
  - Nausea [Recovered/Resolved]
  - Dizziness [Recovered/Resolved]
  - Dysgeusia [Recovered/Resolved]
  - Gait disturbance [Recovered/Resolved]
  - Hypotension [Recovered/Resolved]
  - Scab [Recovering/Resolving]
  - Muscle spasms [Recovered/Resolved]
  - Erythema [Recovering/Resolving]
  - Oedema [Recovering/Resolving]
  - Cardiac disorder [Recovering/Resolving]
  - Blood potassium decreased [Unknown]
  - Pruritus generalised [Recovered/Resolved]
  - Insomnia [Recovered/Resolved]
  - Skin ulcer [Recovering/Resolving]

NARRATIVE: CASE EVENT DATE: 2016
